FAERS Safety Report 9114413 (Version 1)
Quarter: 2013Q1

REPORT INFORMATION
  Report Type: Spontaneous
  Country: DE (occurrence: DE)
  Receive Date: 20130208
  Receipt Date: 20130208
  Transmission Date: 20140127
  Serious: Yes (Other)
  Sender: FDA-Public Use
  Company Number: PHHY2013DE011934

PATIENT
  Age: 25 Year
  Sex: Female
  Weight: 60 kg

DRUGS (5)
  1. MYFORTIC [Suspect]
     Indication: SYSTEMIC LUPUS ERYTHEMATOSUS
     Dosage: 720 MG, BID
     Dates: start: 2008, end: 201301
  2. MYFORTIC [Suspect]
     Dosage: 720 MG, QD
     Dates: start: 201301
  3. QUENSYL [Concomitant]
     Indication: SYSTEMIC LUPUS ERYTHEMATOSUS
     Dosage: UNK
     Dates: start: 2008
  4. PREDNISOLONE [Concomitant]
     Dosage: 4 MG, UNK
     Dates: start: 2008
  5. PREDNISOLONE [Concomitant]
     Dosage: 3 MG, UNK

REACTIONS (2)
  - Osteonecrosis [Unknown]
  - Arthralgia [Unknown]
